FAERS Safety Report 14062012 (Version 1)
Quarter: 2017Q4

REPORT INFORMATION
  Report Type: Spontaneous
  Country: US (occurrence: US)
  Receive Date: 20171009
  Receipt Date: 20171009
  Transmission Date: 20180321
  Serious: No
  Sender: FDA-Public Use
  Company Number: US-PFIZER INC-2016584357

PATIENT
  Age: 69 Year
  Sex: Female

DRUGS (4)
  1. NEOSAR [Concomitant]
     Active Substance: CYCLOPHOSPHAMIDE
     Indication: CHEMOTHERAPY
     Dosage: UNK
  2. DOCETAXEL. [Suspect]
     Active Substance: DOCETAXEL
     Indication: BREAST CANCER FEMALE
  3. DOCETAXEL. [Suspect]
     Active Substance: DOCETAXEL
     Indication: CHEMOTHERAPY
     Dosage: 1 MG, FOUR CYCLES
     Dates: start: 20120817, end: 20121017
  4. ELLENCE [Concomitant]
     Active Substance: EPIRUBICIN HYDROCHLORIDE
     Indication: CHEMOTHERAPY
     Dosage: UNK

REACTIONS (5)
  - Madarosis [Unknown]
  - Alopecia [Not Recovered/Not Resolved]
  - Hair colour changes [Unknown]
  - Hair texture abnormal [Unknown]
  - Hair disorder [Unknown]

NARRATIVE: CASE EVENT DATE: 201210
